FAERS Safety Report 6928410-9 (Version None)
Quarter: 2010Q3

REPORT INFORMATION
  Report Type: 
  Country: None (occurrence: None)
  Receive Date: 20100812
  Receipt Date: 20100729
  Transmission Date: 20110219
  Serious: Yes (Hospitalization)
  Sender: FDA-Public Use
  Company Number: 016791

PATIENT
  Sex: Female

DRUGS (7)
  1. CERTOLIZUMAB PEGOL (CERTOLIZUMAB PEGOL) [Suspect]
     Indication: RHEUMATOID ARTHRITIS
     Dosage: SUBCUTANEOUS
     Route: 058
     Dates: start: 20100421
  2. METHOTREXATE [Concomitant]
  3. PREDNISOLONE [Concomitant]
  4. FELBINAC [Concomitant]
  5. ETODOLAC [Concomitant]
  6. SOFALCONE [Concomitant]
  7. ISONIAZID [Concomitant]

REACTIONS (4)
  - DIZZINESS [None]
  - HEADACHE [None]
  - SUBARACHNOID HAEMORRHAGE [None]
  - VOMITING [None]
